FAERS Safety Report 15997744 (Version 1)
Quarter: 2019Q1

REPORT INFORMATION
  Report Type: Report from Study
  Country: US (occurrence: US)
  Receive Date: 20190222
  Receipt Date: 20190222
  Transmission Date: 20190418
  Serious: Yes (Life-Threatening)
  Sender: FDA-Public Use
  Company Number: US-BIOGEN-2019BI00696883

PATIENT
  Sex: Female

DRUGS (2)
  1. TECFIDERA [Suspect]
     Active Substance: DIMETHYL FUMARATE
     Indication: MULTIPLE SCLEROSIS
     Dosage: MAINTENANCE DOSE
     Route: 048
     Dates: start: 20190121
  2. TECFIDERA [Suspect]
     Active Substance: DIMETHYL FUMARATE
     Route: 048
     Dates: start: 20190131

REACTIONS (9)
  - Dehydration [Recovered/Resolved]
  - Visual impairment [Recovered/Resolved with Sequelae]
  - Hypertension [Recovered/Resolved]
  - Hypersensitivity [Unknown]
  - Limb discomfort [Recovered/Resolved]
  - Cough [Recovered/Resolved]
  - Acid base balance abnormal [Unknown]
  - Pharyngeal oedema [Recovered/Resolved]
  - Pruritus [Unknown]
